FAERS Safety Report 5272893-X (Version None)
Quarter: 2007Q1

REPORT INFORMATION
  Report Type: 
  Country: None (occurrence: None)
  Receive Date: 20070322
  Receipt Date: 20070309
  Transmission Date: 20070707
  Serious: Yes (Other)
  Sender: FDA-Public Use
  Company Number: 2007CG00424

PATIENT
  Age: 60 Year
  Sex: Female

DRUGS (2)
  1. NAROPEINE [Suspect]
     Indication: LOCAL ANAESTHESIA
     Route: 053
     Dates: start: 20070201, end: 20070201
  2. HYPNOVEL [Concomitant]
     Indication: SEDATION
     Dates: start: 20070201, end: 20070201

REACTIONS (1)
  - NEUROMUSCULAR BLOCK PROLONGED [None]
